FAERS Safety Report 23480937 (Version 3)
Quarter: 2025Q1

REPORT INFORMATION
  Report Type: Report from Study
  Country: US (occurrence: US)
  Receive Date: 20240205
  Receipt Date: 20250115
  Transmission Date: 20250409
  Serious: Yes (Other)
  Sender: HRA PHARMA
  Company Number: US-ORG100014127-2023000167

PATIENT
  Age: 67 Year
  Sex: Female

DRUGS (34)
  1. LYSODREN [Suspect]
     Active Substance: MITOTANE
     Indication: Adrenal gland cancer
     Dosage: 06 TABLETS DAILY
     Route: 048
     Dates: start: 20230125, end: 20230514
  2. LYSODREN [Suspect]
     Active Substance: MITOTANE
     Indication: Adrenal gland cancer
     Dosage: 02 TABLETS TWICE DAILY
     Dates: start: 20230517, end: 20230526
  3. LYSODREN [Suspect]
     Active Substance: MITOTANE
     Indication: Adrenal gland cancer
     Dosage: 01 TABLET AM AND 02 TABLETS PM
     Dates: start: 20230529
  4. LYSODREN [Suspect]
     Active Substance: MITOTANE
     Indication: Adrenal gland cancer
  5. ALENDRONATE [Concomitant]
     Active Substance: ALENDRONATE SODIUM
     Indication: Product used for unknown indication
  6. AMLODIPINE [Concomitant]
     Active Substance: AMLODIPINE BESYLATE
     Indication: Product used for unknown indication
  7. Aspirin Low Tab 81mg Ec [Concomitant]
     Indication: Product used for unknown indication
  8. Celexa Tab 10mg [Concomitant]
     Indication: Product used for unknown indication
  9. COLLAGEN POW HYDROLYS [Concomitant]
     Indication: Product used for unknown indication
  10. Epipen 2-Pak Inj 0.3mg [Concomitant]
     Indication: Product used for unknown indication
  11. Flax Seed Cap 1000mg [Concomitant]
     Indication: Product used for unknown indication
  12. Glucosamine Tab 750mg [Concomitant]
     Indication: Product used for unknown indication
  13. Levothyroxin Tab 88mcg [Concomitant]
     Indication: Product used for unknown indication
  14. OMEPRAZOLE [Concomitant]
     Active Substance: OMEPRAZOLE
     Indication: Product used for unknown indication
  15. ONDANSETRON [Concomitant]
     Active Substance: ONDANSETRON
     Indication: Product used for unknown indication
  16. PREDNISONE [Concomitant]
     Active Substance: PREDNISONE
     Indication: Product used for unknown indication
  17. Valtrex Tab 500mg [Concomitant]
     Indication: Product used for unknown indication
  18. Vitamin D3 Cap 5000unit [Concomitant]
     Indication: Product used for unknown indication
  19. Betameth dip oin 0.05% [Concomitant]
     Indication: Product used for unknown indication
  20. Fludrocort tablet 0.1mg [Concomitant]
     Indication: Product used for unknown indication
  21. Levothyroxine capsule 125mcg [Concomitant]
     Indication: Product used for unknown indication
  22. Losartan pot tablet 100mg [Concomitant]
     Indication: Product used for unknown indication
  23. Metoprol suc tablet 25mg er [Concomitant]
     Indication: Product used for unknown indication
  24. Multivitamin tablet adults [Concomitant]
     Indication: Product used for unknown indication
  25. Sodium chloride 1 mg tablet [Concomitant]
     Indication: Product used for unknown indication
  26. SYNTHROID [Concomitant]
     Active Substance: LEVOTHYROXINE SODIUM
     Indication: Product used for unknown indication
  27. Advanced Tart Cherry Extract Capsules [Concomitant]
     Indication: Product used for unknown indication
  28. tumeric capsule 500mg [Concomitant]
     Indication: Product used for unknown indication
  29. valtrex capsules 500mg [Concomitant]
     Indication: Product used for unknown indication
  30. vitamin D3 tablet 1000unit [Concomitant]
     Indication: Product used for unknown indication
  31. HYDRALAZINE [Concomitant]
     Active Substance: HYDRALAZINE HYDROCHLORIDE
     Indication: Product used for unknown indication
  32. Lipitor tablet 20 mg [Concomitant]
     Indication: Product used for unknown indication
  33. SELENIUM [Concomitant]
     Active Substance: SELENIUM
     Indication: Product used for unknown indication
  34. POTASSIUM CHLORIDE [Concomitant]
     Active Substance: POTASSIUM CHLORIDE
     Indication: Product used for unknown indication

REACTIONS (3)
  - Adrenal insufficiency [Unknown]
  - Rash [Recovering/Resolving]
  - Fatigue [Not Recovered/Not Resolved]

NARRATIVE: CASE EVENT DATE: 20230101
